FAERS Safety Report 23780949 (Version 1)
Quarter: 2024Q2

REPORT INFORMATION
  Report Type: Report from Study
  Country: CA (occurrence: CA)
  Receive Date: 20240425
  Receipt Date: 20240425
  Transmission Date: 20240716
  Serious: Yes (Other)
  Sender: FDA-Public Use
  Company Number: CA-TAKEDA-2024TUS000974

PATIENT
  Sex: Female

DRUGS (2)
  1. VEDOLIZUMAB [Suspect]
     Active Substance: VEDOLIZUMAB
     Indication: Colitis ulcerative
     Dosage: 300 MILLIGRAM
     Route: 042
     Dates: start: 20211029
  2. Salofalk [Concomitant]
     Dosage: UNK UNK, QD
     Route: 048
     Dates: start: 2012

REACTIONS (3)
  - Haematochezia [Unknown]
  - Sinus congestion [Unknown]
  - Abdominal pain [Recovered/Resolved]
